FAERS Safety Report 24897465 (Version 1)
Quarter: 2025Q1

REPORT INFORMATION
  Report Type: Spontaneous
  Country: ES (occurrence: ES)
  Receive Date: 20250129
  Receipt Date: 20250129
  Transmission Date: 20250409
  Serious: Yes (Hospitalization)
  Sender: AUROBINDO
  Company Number: ES-AEMPS-1619739

PATIENT
  Age: 14 Year
  Sex: Male
  Weight: 45 kg

DRUGS (1)
  1. LEVOFLOXACIN [Suspect]
     Active Substance: LEVOFLOXACIN
     Indication: Tuberculosis
     Dosage: 750 MILLIGRAM, ONCE A DAY (750 MGR/24 HORAS)
     Route: 048
     Dates: start: 20240208, end: 20240221

REACTIONS (2)
  - Arthritis [Recovered/Resolved]
  - Tendonitis [Recovered/Resolved]

NARRATIVE: CASE EVENT DATE: 20240215
